FAERS Safety Report 18581221 (Version 2)
Quarter: 2020Q4

REPORT INFORMATION
  Report Type: Spontaneous
  Country: KR (occurrence: KR)
  Receive Date: 20201204
  Receipt Date: 20201211
  Transmission Date: 20210114
  Serious: Yes (Other)
  Sender: FDA-Public Use
  Company Number: KR-ASTRAZENECA-2020SF59234

PATIENT
  Age: 77 Year
  Sex: Male

DRUGS (8)
  1. TAXOL [Concomitant]
     Active Substance: PACLITAXEL
     Dosage: 45/20 D1 (2020/06/02) D8 (06/09) D15 (06/16) D22 (06/23) D29 (06/30) D36 (07/07)
     Route: 065
  2. LEVOFLOXACIN. [Concomitant]
     Active Substance: LEVOFLOXACIN
     Dosage: DOSE AND FREQUENCY UNKNOWN
     Route: 065
  3. METHYLPREDNISOLONE. [Concomitant]
     Active Substance: METHYLPREDNISOLONE
     Dosage: 160.0MG UNKNOWN
     Route: 065
  4. IMFINZI [Suspect]
     Active Substance: DURVALUMAB
     Indication: LUNG NEOPLASM MALIGNANT
     Dosage: 10.0MG/KG UNKNOWN
     Route: 042
     Dates: start: 20200731
  5. MEROPENEM. [Concomitant]
     Active Substance: MEROPENEM
     Dosage: DOSE AND FREQUENCY UNKNOWN
     Route: 065
  6. PIPERACILLIN AND TAZOBACTAM [Concomitant]
     Active Substance: PIPERACILLIN SODIUM\TAZOBACTAM SODIUM
     Dosage: DOSE AND FREQUENCY UNKNOWN
     Route: 065
  7. METHYLPREDNISOLONE. [Concomitant]
     Active Substance: METHYLPREDNISOLONE
     Dosage: 80.0MG UNKNOWN
     Route: 065
  8. CISP [Concomitant]
     Dosage: 45/20 D1 (2020/06/02) D8 (06/09) D15 (06/16) D22 (06/23) D29 (06/30) D36 (07/07)
     Route: 065

REACTIONS (8)
  - Oxygen saturation decreased [Unknown]
  - Pneumonitis [Unknown]
  - Bronchopulmonary aspergillosis [Unknown]
  - Pyrexia [Unknown]
  - White blood cell count increased [Unknown]
  - C-reactive protein increased [Unknown]
  - Procalcitonin increased [Unknown]
  - Chest pain [Recovered/Resolved]

NARRATIVE: CASE EVENT DATE: 20200811
